FAERS Safety Report 9159620 (Version 1)
Quarter: 2013Q1

REPORT INFORMATION
  Report Type: Report from Study
  Country: US (occurrence: US)
  Receive Date: 20130313
  Receipt Date: 20130313
  Transmission Date: 20140127
  Serious: No
  Sender: FDA-Public Use
  Company Number: US-VERTEX PHARMACEUTICALS INC.-2013-003392

PATIENT
  Age: 26 Year
  Sex: Male
  Weight: 63 kg

DRUGS (7)
  1. VX-950 (TELAPREVIR) [Suspect]
     Indication: HEPATITIS C
     Dosage: 750 MG, TID
     Route: 048
  2. RIBAVIRIN [Suspect]
     Indication: HEPATITIS C
     Dosage: 200 MG, UNK
  3. PEGASYS [Suspect]
     Indication: HEPATITIS C
  4. VITAMIN D2 [Concomitant]
     Dosage: 2000 UT, UNK
  5. REMERON [Concomitant]
     Dosage: 30 MG, UNK
  6. IBUPROFEN [Concomitant]
     Dosage: 200 MG, UNK
  7. MELATONIN [Concomitant]
     Dosage: 10 MG, UNK

REACTIONS (1)
  - Fatigue [Unknown]
